FAERS Safety Report 21184510 (Version 1)
Quarter: 2022Q3

REPORT INFORMATION
  Report Type: Spontaneous
  Country: CH (occurrence: CH)
  Receive Date: 20220808
  Receipt Date: 20220808
  Transmission Date: 20221027
  Serious: Yes (Hospitalization, Other)
  Sender: FDA-Public Use
  Company Number: CH-MLMSERVICE-20220722-3693252-1

PATIENT
  Age: 35 Year
  Sex: Female

DRUGS (3)
  1. LOPERAMIDE HYDROCHLORIDE [Suspect]
     Active Substance: LOPERAMIDE HYDROCHLORIDE
     Indication: Anxiety disorder due to a general medical condition
     Dosage: 40 MG, QD
     Route: 048
  2. LOPERAMIDE HYDROCHLORIDE [Suspect]
     Active Substance: LOPERAMIDE HYDROCHLORIDE
     Indication: Diarrhoea
     Dosage: 60 MG, QD
     Route: 048
  3. LOPERAMIDE HYDROCHLORIDE [Suspect]
     Active Substance: LOPERAMIDE HYDROCHLORIDE
     Indication: Phobia

REACTIONS (8)
  - Drug withdrawal syndrome [Recovering/Resolving]
  - Drug use disorder [Recovering/Resolving]
  - Mydriasis [Recovering/Resolving]
  - Intentional product misuse [Recovered/Resolved]
  - Drug dependence [Recovering/Resolving]
  - Electrocardiogram QT prolonged [Recovering/Resolving]
  - Irritability [Recovering/Resolving]
  - Rhinorrhoea [Recovering/Resolving]
